FAERS Safety Report 18933530 (Version 3)
Quarter: 2021Q4

REPORT INFORMATION
  Report Type: Spontaneous
  Country: US (occurrence: US)
  Receive Date: 20210224
  Receipt Date: 20211019
  Transmission Date: 20220303
  Serious: Yes (Hospitalization, Other)
  Sender: FDA-Public Use
  Company Number: US-SA-SAC20210221000125

PATIENT
  Age: 59 Year
  Sex: Female

DRUGS (2)
  1. DUPIXENT [Suspect]
     Active Substance: DUPILUMAB
     Indication: Asthma
     Dosage: 300 MG, QOW
     Route: 058
     Dates: start: 201912
  2. DUPIXENT [Suspect]
     Active Substance: DUPILUMAB
     Dosage: 300 MG, QOW
     Route: 058
     Dates: start: 20210121

REACTIONS (7)
  - Diabetes mellitus inadequate control [Unknown]
  - Asthma [Unknown]
  - Dyspnoea [Unknown]
  - Cataract [Unknown]
  - Vision blurred [Unknown]
  - Eye pain [Unknown]
  - Product use issue [Unknown]

NARRATIVE: CASE EVENT DATE: 20191201
